FAERS Safety Report 19932163 (Version 1)
Quarter: 2021Q4

REPORT INFORMATION
  Report Type: Spontaneous
  Country: BR (occurrence: BR)
  Receive Date: 20211008
  Receipt Date: 20211008
  Transmission Date: 20220303
  Serious: Yes (Other)
  Sender: FDA-Public Use
  Company Number: BR-TAKEDA-2021TUS060773

PATIENT
  Sex: Male
  Weight: 92 kg

DRUGS (4)
  1. DEXILANT [Suspect]
     Active Substance: DEXLANSOPRAZOLE
     Indication: Gastritis
     Dosage: 60 MILLIGRAM, QD
     Route: 048
     Dates: start: 20210914, end: 20210927
  2. DEXILANT [Suspect]
     Active Substance: DEXLANSOPRAZOLE
     Indication: Helicobacter infection
  3. Astro [Concomitant]
     Indication: Helicobacter infection
     Dosage: 500 MILLIGRAM, QD
     Route: 065
     Dates: start: 20210911
  4. Prolive [Concomitant]
     Indication: Dysbiosis
     Dosage: UNK
     Route: 065

REACTIONS (10)
  - Frequent bowel movements [Unknown]
  - Haematochezia [Unknown]
  - Drug ineffective for unapproved indication [Unknown]
  - Abdominal pain upper [Unknown]
  - Off label use [Unknown]
  - Agitation [Unknown]
  - Dysuria [Unknown]
  - Pain [Unknown]
  - Diarrhoea [Recovered/Resolved]
  - Adverse drug reaction [Unknown]
